FAERS Safety Report 10244342 (Version 3)
Quarter: 2014Q3

REPORT INFORMATION
  Report Type: Spontaneous
  Country: US (occurrence: US)
  Receive Date: 20140618
  Receipt Date: 20140721
  Transmission Date: 20150326
  Serious: Yes (Death, Other)
  Sender: FDA-Public Use
  Company Number: US-SA-2014SA080144

PATIENT
  Age: 68 Year
  Sex: Female

DRUGS (4)
  1. MULTIVITAMINS [Concomitant]
     Active Substance: VITAMINS
  2. THYROGEN [Suspect]
     Active Substance: THYROTROPIN ALFA
     Indication: THERAPEUTIC PROCEDURE
     Route: 065
     Dates: start: 20131209, end: 20131210
  3. VITAMIN D [Concomitant]
     Active Substance: CHOLECALCIFEROL
  4. IODINE (131 I) [Concomitant]
     Active Substance: SODIUM IODIDE I-131

REACTIONS (5)
  - Nausea [Unknown]
  - Subarachnoid haemorrhage [Fatal]
  - Cerebrovascular accident [Unknown]
  - Loss of consciousness [Unknown]
  - Headache [Unknown]

NARRATIVE: CASE EVENT DATE: 20131213
